FAERS Safety Report 5534669-5 (Version None)
Quarter: 2007Q4

REPORT INFORMATION
  Report Type: 
  Country: None (occurrence: None)
  Receive Date: 20071205
  Receipt Date: 20071127
  Transmission Date: 20080405
  Serious: Yes (Other)
  Sender: FDA-Public Use
  Company Number: BE-SANOFI-SYNTHELABO-D01200703861

PATIENT
  Sex: Male
  Weight: 108 kg

DRUGS (6)
  1. MAGNESPASMYL [Concomitant]
  2. COAPROVEL [Concomitant]
  3. LIPITOR [Concomitant]
  4. COVERSYL [Concomitant]
  5. CLOPIDOGREL [Suspect]
     Dosage: 75 MG
     Route: 048
     Dates: start: 20070223, end: 20070608
  6. SL650472 [Suspect]
     Indication: PERIPHERAL ARTERIAL OCCLUSIVE DISEASE
     Dosage: 5 MG DAILY OF SL650472
     Route: 048
     Dates: start: 20070309, end: 20070608

REACTIONS (1)
  - HYPERTHYROIDISM [None]
